FAERS Safety Report 9260137 (Version 2)
Quarter: 2013Q2

REPORT INFORMATION
  Report Type: Report from Study
  Country: GB (occurrence: GB)
  Receive Date: 20130429
  Receipt Date: 20130507
  Transmission Date: 20140414
  Serious: Yes (Hospitalization)
  Sender: FDA-Public Use
  Company Number: GB-TEVA-2011001604

PATIENT
  Age: 88 Year
  Sex: Male
  Weight: 67.3 kg

DRUGS (4)
  1. BENDAMUSTINE HCL [Suspect]
     Dosage: DOSAGE FORM OF BENDAMUSTINE WAS REPORTED AS LIQUID
     Route: 042
     Dates: start: 20100817
  2. RITUXIMAB [Suspect]
     Route: 042
     Dates: start: 20100817
  3. BISOPROLOL [Concomitant]
     Dates: start: 1997
  4. ASPIRIN [Concomitant]
     Dates: start: 1997

REACTIONS (1)
  - Lower respiratory tract infection [Recovered/Resolved with Sequelae]
